FAERS Safety Report 7583182-2 (Version None)
Quarter: 2011Q2

REPORT INFORMATION
  Report Type: 
  Country: None (occurrence: None)
  Receive Date: 20110623
  Receipt Date: 20110608
  Transmission Date: 20111010
  Serious: Yes (Other)
  Sender: FDA-Public Use
  Company Number: 2011SP027280

PATIENT
  Sex: Female

DRUGS (1)
  1. CORICIDIN [Suspect]
     Indication: NASOPHARYNGITIS
     Dosage: PO
     Route: 048

REACTIONS (3)
  - DRUG INEFFECTIVE [None]
  - EYE DISORDER [None]
  - PNEUMONIA [None]
